FAERS Safety Report 12353397 (Version 2)
Quarter: 2016Q3

REPORT INFORMATION
  Report Type: Report from Study
  Country: BR (occurrence: BR)
  Receive Date: 20160510
  Receipt Date: 20160901
  Transmission Date: 20161109
  Serious: Yes (Hospitalization)
  Sender: FDA-Public Use
  Company Number: PHHY2016BR063878

PATIENT
  Sex: Male
  Weight: 42 kg

DRUGS (2)
  1. EXELON PATCH [Suspect]
     Active Substance: RIVASTIGMINE
     Dosage: 9.5 MG (PATCH 10 CM2), QD
     Route: 062
     Dates: start: 201608
  2. EXELON PATCH [Suspect]
     Active Substance: RIVASTIGMINE
     Indication: MEMORY IMPAIRMENT
     Dosage: 4.6 MG, (PATCH 5 CM2), QD
     Route: 062
     Dates: start: 201604

REACTIONS (5)
  - Wrong technique in product usage process [Unknown]
  - Asthenia [Recovering/Resolving]
  - Decreased appetite [Recovering/Resolving]
  - Feeling hot [Unknown]
  - Concomitant disease aggravated [Unknown]
